FAERS Safety Report 10010764 (Version 1)
Quarter: 2014Q1

REPORT INFORMATION
  Report Type: Spontaneous
  Country: US (occurrence: US)
  Receive Date: 20140314
  Receipt Date: 20140314
  Transmission Date: 20141002
  Serious: Yes (Other)
  Sender: FDA-Public Use
  Company Number: US-ROCHE-1364932

PATIENT
  Age: 49 Year
  Sex: Female

DRUGS (4)
  1. XOLAIR [Suspect]
     Indication: ASTHMA
     Route: 058
     Dates: start: 2013
  2. PREDNISONE [Concomitant]
  3. ALBUTEROL [Concomitant]
  4. DULERA [Concomitant]

REACTIONS (3)
  - Asthma [Recovered/Resolved]
  - Dizziness [Recovered/Resolved]
  - Mood swings [Recovered/Resolved]
